FAERS Safety Report 8030477-4 (Version None)
Quarter: 2012Q1

REPORT INFORMATION
  Report Type: 
  Country: None (occurrence: None)
  Receive Date: 20120109
  Receipt Date: 20111226
  Transmission Date: 20120608
  Serious: Yes (Hospitalization)
  Sender: FDA-Public Use
  Company Number: BE-CELGENEUS-013-21880-11103541

PATIENT
  Sex: Male
  Weight: 102 kg

DRUGS (8)
  1. PERINDOPRIL ERBUMINE [Concomitant]
     Dosage: 10 MILLIGRAM
     Route: 048
  2. CRESTOR [Concomitant]
     Dosage: 10 MILLIGRAM
     Route: 048
  3. REVLIMID [Suspect]
     Indication: MULTIPLE MYELOMA
     Dosage: 25 MILLIGRAM
     Route: 048
     Dates: start: 20111017, end: 20111025
  4. DEXAMETHASONE [Concomitant]
     Indication: MULTIPLE MYELOMA
     Dosage: 40 MILLIGRAM
     Route: 048
     Dates: start: 20111017
  5. BISOPROLOL FUMARATE [Concomitant]
     Dosage: 10 MILLIGRAM
     Route: 048
  6. REVLIMID [Suspect]
     Route: 048
     Dates: start: 20111105
  7. RANITIDINE [Concomitant]
     Indication: PROPHYLAXIS
     Dosage: 150 MILLIGRAM
     Route: 048
     Dates: start: 20111023
  8. ASAFLOW [Concomitant]
     Dosage: 80 MILLIGRAM
     Route: 048

REACTIONS (1)
  - PNEUMONIA [None]
